FAERS Safety Report 20573855 (Version 3)
Quarter: 2022Q3

REPORT INFORMATION
  Report Type: Report from Study
  Country: AT (occurrence: AT)
  Receive Date: 20220309
  Receipt Date: 20220714
  Transmission Date: 20221027
  Serious: Yes (Hospitalization)
  Sender: FDA-Public Use
  Company Number: AT-ALNYLAM PHARMACEUTICALS, INC.-ALN-2022-000837

PATIENT

DRUGS (11)
  1. ONPATTRO [Suspect]
     Active Substance: PATISIRAN SODIUM
     Indication: Hereditary neuropathic amyloidosis
     Dosage: 21 MILLIGRAM, Q3W
     Route: 065
     Dates: start: 20220620
  2. ONPATTRO [Suspect]
     Active Substance: PATISIRAN SODIUM
     Dosage: 21.9 MILLIGRAM, Q3W
     Route: 065
     Dates: start: 20220509
  3. ONPATTRO [Suspect]
     Active Substance: PATISIRAN SODIUM
     Dosage: 22.5 MILLIGRAM, Q3W
     Route: 065
     Dates: start: 202102
  4. VITAMIN A [Concomitant]
     Active Substance: VITAMIN A
     Indication: Prophylaxis
     Dosage: 2500 INTERNATIONAL UNIT
     Route: 048
     Dates: start: 2021
  5. HUMIRA [Concomitant]
     Active Substance: ADALIMUMAB
     Indication: Rheumatic disorder
     Dosage: FOR 14 DAYS
     Route: 058
  6. PHENPROCOUMON [Concomitant]
     Active Substance: PHENPROCOUMON
     Indication: Product used for unknown indication
     Dosage: DEPENDING ON INR
     Route: 065
  7. LASIX [Concomitant]
     Active Substance: FUROSEMIDE
     Indication: Drainage
     Dosage: 40 MILLIGRAM-80 MILLIGRAM
     Route: 048
  8. INSPRA [Concomitant]
     Active Substance: EPLERENONE
     Indication: Cardiac disorder
     Dosage: 25 MILLIGRAM, QD
     Route: 048
  9. ADEMPAS [Concomitant]
     Active Substance: RIOCIGUAT
     Indication: Pulmonary hypertension
     Dosage: 0.5 MILLIGRAM, QD
     Route: 048
  10. BISOPROLOL [Concomitant]
     Active Substance: BISOPROLOL
     Indication: Blood pressure management
     Dosage: 2.5 MILLIGRAM, QD
     Route: 048
  11. ALLOPURINOL [Concomitant]
     Active Substance: ALLOPURINOL
     Indication: Rheumatic disorder
     Dosage: 100 MILLIGRAM, QD
     Route: 048

REACTIONS (2)
  - Cardiac disorder [Recovered/Resolved]
  - Heart transplant [Recovering/Resolving]

NARRATIVE: CASE EVENT DATE: 20220224
